FAERS Safety Report 4945952-6 (Version None)
Quarter: 2006Q1

REPORT INFORMATION
  Report Type: 
  Country: None (occurrence: None)
  Receive Date: 20060127
  Receipt Date: 20051111
  Transmission Date: 20060701
  Serious: No
  Sender: FDA-Public Use
  Company Number: CLOF-10146

PATIENT
  Age: 77 Year
  Sex: Male

DRUGS (8)
  1. CLOFARABINE [Suspect]
     Indication: ACUTE MYELOID LEUKAEMIA
     Dosage: 60.9 MG QD X 5 IV
     Route: 042
     Dates: start: 20050802
  2. CYTARABINE [Suspect]
     Indication: ACUTE MYELOID LEUKAEMIA
     Dosage: 40.6 MG QD SC
     Route: 058
     Dates: start: 20050802
  3. NUFOL [Concomitant]
  4. VORICONAZOLE [Concomitant]
  5. LEVAQUIN [Concomitant]
  6. VALTREX [Concomitant]
  7. LIPITOR [Concomitant]
  8. LISINOPRIL [Concomitant]

REACTIONS (1)
  - PLATELET COUNT DECREASED [None]
